FAERS Safety Report 11105282 (Version 1)
Quarter: 2015Q2

REPORT INFORMATION
  Report Type: Spontaneous
  Country: ES (occurrence: ES)
  Receive Date: 20150512
  Receipt Date: 20150512
  Transmission Date: 20150821
  Serious: Yes (Hospitalization)
  Sender: FDA-Public Use
  Company Number: ES-MYLANLABS-2015M1015402

PATIENT

DRUGS (8)
  1. DIGOXIN. [Concomitant]
     Active Substance: DIGOXIN
     Route: 065
  2. INSULATARD                         /00646002/ [Concomitant]
     Active Substance: INSULIN NOS
     Dosage: 36 IU EVERY 24 H
     Route: 065
  3. BUDESONIDE W/FORMOTEROL [Concomitant]
     Dosage: FORMOTEROL 4.5MICROG; BUDESONIDE 160MICROG; EVERY 12H
     Route: 055
  4. HYDRALAZINE [Suspect]
     Active Substance: HYDRALAZINE HYDROCHLORIDE
     Route: 065
  5. DIGOXIN. [Concomitant]
     Active Substance: DIGOXIN
     Indication: ATRIAL FIBRILLATION
     Route: 065
  6. ACENOCOUMAROL [Concomitant]
     Active Substance: ACENOCOUMAROL
     Dosage: DOSE ACCORDING TO INR VALUES
     Route: 065
  7. AMIODARONE [Concomitant]
     Active Substance: AMIODARONE
     Indication: ATRIAL FIBRILLATION
     Route: 042
  8. JANUGLIPTIN PLUS [Concomitant]
     Dosage: SITAGLIPTIN 50MG; METFORMIN 1000MG; EVERY 24H
     Route: 065

REACTIONS (4)
  - Overdose [Recovering/Resolving]
  - Condition aggravated [Recovering/Resolving]
  - Cardiorenal syndrome [Recovering/Resolving]
  - Toxicity to various agents [Recovering/Resolving]
